FAERS Safety Report 9966191 (Version 1)
Quarter: 2014Q1

REPORT INFORMATION
  Report Type: Report from Study
  Country: US (occurrence: US)
  Receive Date: 20140305
  Receipt Date: 20140305
  Transmission Date: 20141002
  Serious: No
  Sender: FDA-Public Use
  Company Number: US-ABBVIE-13P-163-1121372-00

PATIENT
  Sex: Female

DRUGS (2)
  1. HUMIRA [Suspect]
     Indication: PRODUCT USED FOR UNKNOWN INDICATION
     Route: 058
     Dates: end: 201306
  2. HUMIRA [Suspect]
     Route: 058
     Dates: start: 201306

REACTIONS (4)
  - Nasal mucosal discolouration [Unknown]
  - Nasal congestion [Unknown]
  - Wound [Unknown]
  - Nasal discomfort [Unknown]
